FAERS Safety Report 8628884 (Version 4)
Quarter: 2013Q2

REPORT INFORMATION
  Report Type: Spontaneous
  Country: US (occurrence: US)
  Receive Date: 20120621
  Receipt Date: 20130404
  Transmission Date: 20140414
  Serious: Yes (Hospitalization, Disabling, Other)
  Sender: FDA-Public Use
  Company Number: US-ASTRAZENECA-2012SE39504

PATIENT
  Age: 47 Year
  Sex: Female

DRUGS (2)
  1. CRESTOR [Suspect]
     Route: 048
     Dates: end: 2011
  2. UNKNOWN [Concomitant]

REACTIONS (7)
  - Myocardial infarction [Unknown]
  - Disability [Unknown]
  - Cerebrovascular accident [Unknown]
  - Tachycardia [Unknown]
  - Arrhythmia [Recovered/Resolved]
  - Cardiac disorder [Unknown]
  - Fatigue [Unknown]
